FAERS Safety Report 9145790 (Version 1)
Quarter: 2013Q1

REPORT INFORMATION
  Report Type: Spontaneous
  Country: US (occurrence: None)
  Receive Date: 20130214
  Receipt Date: 20130214
  Transmission Date: 20140127
  Serious: Yes (Death)
  Sender: FDA-Public Use
  Company Number: 2013020054

PATIENT
  Age: 39 Year
  Sex: Male

DRUGS (5)
  1. CARISOPRODOL [Suspect]
     Indication: COMPLETED SUICIDE
     Route: 048
  2. AMITRIPTYLINE [Suspect]
     Indication: COMPLETED SUICIDE
     Route: 048
  3. MORPHINE [Suspect]
     Indication: COMPLETED SUICIDE
     Route: 048
  4. MORPHINE [Suspect]
     Indication: COMPLETED SUICIDE
     Route: 048
  5. OXYCODONE (OXYCODONE) [Suspect]
     Indication: COMPLETED SUICIDE
     Route: 048

REACTIONS (3)
  - Completed suicide [None]
  - Cardiac arrest [None]
  - Respiratory arrest [None]
